FAERS Safety Report 24805533 (Version 1)
Quarter: 2025Q1

REPORT INFORMATION
  Report Type: Spontaneous
  Country: PL (occurrence: PL)
  Receive Date: 20250103
  Receipt Date: 20250103
  Transmission Date: 20250409
  Serious: Yes (Other)
  Sender: SK LIFE SCIENCE
  Company Number: PL-ACRAF SpA-2024-036682

PATIENT

DRUGS (4)
  1. XCOPRI [Suspect]
     Active Substance: CENOBAMATE
     Indication: Partial seizures
     Dosage: 25 MG
     Route: 048
     Dates: start: 20230327, end: 20230421
  2. LAMOTRIGINE [Concomitant]
     Active Substance: LAMOTRIGINE
     Indication: Product used for unknown indication
     Route: 065
  3. VALPROATE [Concomitant]
     Active Substance: VALPROIC ACID
     Indication: Product used for unknown indication
     Route: 065
  4. BRIVARACETAM [Concomitant]
     Active Substance: BRIVARACETAM
     Indication: Product used for unknown indication
     Route: 065

REACTIONS (7)
  - Seizure [Unknown]
  - Pyrexia [Unknown]
  - Lymphadenopathy [Unknown]
  - Hypersensitivity [Unknown]
  - Rash [Unknown]
  - Dermatitis allergic [Unknown]
  - Pruritus [Unknown]
